FAERS Safety Report 7091329-X (Version None)
Quarter: 2010Q4

REPORT INFORMATION
  Report Type: 
  Country: None (occurrence: None)
  Receive Date: 20101109
  Receipt Date: 20101104
  Transmission Date: 20110411
  Serious: Yes (Death, Hospitalization, Congenital Anomaly)
  Sender: FDA-Public Use
  Company Number: A0699596A

PATIENT
  Sex: Female
  Weight: 0.7 kg

DRUGS (4)
  1. PAROXETINE HYDROCHLORIDE [Suspect]
     Indication: DEPRESSION
     Dosage: 20MG PER DAY
     Dates: start: 20041101, end: 20060101
  2. ZOLOFT [Concomitant]
  3. CEFAZOLIN [Concomitant]
  4. FLINTSTONE VITAMINS [Concomitant]

REACTIONS (9)
  - ATRIAL SEPTAL DEFECT [None]
  - BRONCHOPULMONARY DYSPLASIA [None]
  - CARDIAC ARREST [None]
  - CARDIAC FAILURE [None]
  - COR PULMONALE [None]
  - DRUG EXPOSURE DURING PREGNANCY [None]
  - HYPOTENSION [None]
  - PATENT DUCTUS ARTERIOSUS [None]
  - RESPIRATORY DISTRESS [None]
